FAERS Safety Report 10459488 (Version 1)
Quarter: 2014Q3

REPORT INFORMATION
  Report Type: Report from Study
  Country: US (occurrence: US)
  Receive Date: 20140917
  Receipt Date: 20140917
  Transmission Date: 20150326
  Serious: Yes (Death, Hospitalization)
  Sender: FDA-Public Use
  Company Number: PHHO2014US012383

PATIENT
  Age: 65 Year
  Sex: Male
  Weight: 101.4 kg

DRUGS (4)
  1. GLIPIZIDE. [Suspect]
     Active Substance: GLIPIZIDE
     Dosage: 20 MG, QD
  2. HYDROMORPHONE [Suspect]
     Active Substance: HYDROMORPHONE
     Dosage: 4 MG, PRN [2 TO 3 TIMES]
  3. FENTANYL. [Suspect]
     Active Substance: FENTANYL
     Dosage: 50 UG, Q72H
  4. AFINITOR [Suspect]
     Active Substance: EVEROLIMUS
     Indication: PLEURAL MESOTHELIOMA MALIGNANT
     Dosage: 10 MG, QD
     Route: 048
     Dates: start: 20090724, end: 20091024

REACTIONS (4)
  - Death [Fatal]
  - Lung infection [Not Recovered/Not Resolved]
  - Dyspnoea [Not Recovered/Not Resolved]
  - Confusional state [Not Recovered/Not Resolved]

NARRATIVE: CASE EVENT DATE: 20091024
